FAERS Safety Report 5314166-2 (Version None)
Quarter: 2007Q2

REPORT INFORMATION
  Report Type: 
  Country: None (occurrence: None)
  Receive Date: 20070426
  Receipt Date: 20070416
  Transmission Date: 20071010
  Serious: Yes (Hospitalization)
  Sender: FDA-Public Use
  Company Number: 2006002228

PATIENT
  Age: 56 Year
  Sex: Female

DRUGS (3)
  1. ERLOTINIB (TABLET) [Suspect]
     Indication: OVARIAN CANCER
     Dosage: 100 MG (QD), ORAL
     Route: 048
     Dates: start: 20060922
  2. PAROXETINE HCL [Concomitant]
  3. NOCTAMIDE (LORMETAZEPAM [Concomitant]

REACTIONS (2)
  - SMALL INTESTINAL OBSTRUCTION [None]
  - SUBILEUS [None]
